FAERS Safety Report 23049033 (Version 3)
Quarter: 2023Q4

REPORT INFORMATION
  Report Type: Report from Study
  Country: US (occurrence: US)
  Receive Date: 20231010
  Receipt Date: 20231117
  Transmission Date: 20240110
  Serious: Yes (Other)
  Sender: FDA-Public Use
  Company Number: US-ABBVIE-5325991

PATIENT
  Sex: Female
  Weight: 68.038 kg

DRUGS (4)
  1. HUMIRA [Suspect]
     Active Substance: ADALIMUMAB
     Indication: Rheumatoid arthritis
     Dosage: FORM STRENGTH: 40 MG, CITRATE FREE, LAST ADMIN DATE 2023
     Route: 058
     Dates: start: 20230302
  2. HUMIRA [Suspect]
     Active Substance: ADALIMUMAB
     Dosage: FORM STRENGTH: 40 MG, CITRATE FREE
     Route: 058
     Dates: start: 2023, end: 20231003
  3. HUMIRA [Suspect]
     Active Substance: ADALIMUMAB
     Dosage: FORM STRENGTH: 40 MG, CITRATE FREE
     Route: 058
     Dates: start: 202304, end: 202307
  4. HUMIRA [Suspect]
     Active Substance: ADALIMUMAB
     Dosage: FORM STRENGTH: 40 MG, CITRATE FREE?LAST ADMIN DATE: 2023,
     Route: 058
     Dates: start: 20230216

REACTIONS (40)
  - Orthopaedic procedure [Unknown]
  - Nodule [Not Recovered/Not Resolved]
  - Stress [Unknown]
  - Abnormal loss of weight [Unknown]
  - Arthritis infective [Not Recovered/Not Resolved]
  - Spinal osteoarthritis [Unknown]
  - White blood cell count increased [Unknown]
  - Lumbosacral radiculopathy [Unknown]
  - Drug therapy [Unknown]
  - Erythema [Unknown]
  - Thoracic radiculopathy [Unknown]
  - Arthritis [Not Recovered/Not Resolved]
  - Skin induration [Unknown]
  - Pruritus [Unknown]
  - Skin disorder [Unknown]
  - Cartilage injury [Unknown]
  - Osteoarthritis [Unknown]
  - Myalgia [Unknown]
  - Nodule [Not Recovered/Not Resolved]
  - Soft tissue swelling [Unknown]
  - Intervertebral disc displacement [Unknown]
  - Infection [Not Recovered/Not Resolved]
  - Arthropathy [Unknown]
  - Spinal osteoarthritis [Unknown]
  - Cervical radiculopathy [Unknown]
  - Bursitis [Unknown]
  - Blister [Recovering/Resolving]
  - Headache [Unknown]
  - Osteoporosis [Unknown]
  - Rotator cuff syndrome [Unknown]
  - Neck pain [Unknown]
  - Joint hyperextension [Unknown]
  - Spinal fusion surgery [Unknown]
  - Bursitis [Unknown]
  - Cellulitis [Recovering/Resolving]
  - Musculoskeletal discomfort [Unknown]
  - Intervertebral disc degeneration [Unknown]
  - Bone pain [Unknown]
  - Peripheral swelling [Unknown]
  - Joint stiffness [Unknown]

NARRATIVE: CASE EVENT DATE: 20230101
